FAERS Safety Report 6672007-5 (Version None)
Quarter: 2010Q2

REPORT INFORMATION
  Report Type: 
  Country: None (occurrence: None)
  Receive Date: 20100407
  Receipt Date: 20100331
  Transmission Date: 20101027
  Serious: Yes (Hospitalization, Disabling)
  Sender: FDA-Public Use
  Company Number: US-MERCK-0705USA01436

PATIENT
  Age: 56 Year
  Sex: Female
  Weight: 73 kg

DRUGS (2)
  1. FOSAMAX [Suspect]
     Indication: OSTEOPOROSIS
     Route: 048
     Dates: start: 19980430, end: 20000907
  2. SYNTHROID [Concomitant]
     Route: 065
     Dates: start: 19880101

REACTIONS (46)
  - ABDOMINAL DISCOMFORT [None]
  - ADVERSE EVENT [None]
  - ANGIODYSPLASIA [None]
  - ARTHRALGIA [None]
  - BACK PAIN [None]
  - BILIARY DILATATION [None]
  - BONE DENSITY DECREASED [None]
  - BURNS SECOND DEGREE [None]
  - CARPAL TUNNEL SYNDROME [None]
  - COLONIC POLYP [None]
  - CYST [None]
  - DERMAL CYST [None]
  - DEVICE FAILURE [None]
  - DIVERTICULUM [None]
  - DRUG INEFFECTIVE [None]
  - DYSMORPHISM [None]
  - DYSPAREUNIA [None]
  - EXOSTOSIS [None]
  - FOOT FRACTURE [None]
  - GINGIVAL DISORDER [None]
  - HAEMORRHOIDS [None]
  - IRRITABLE BOWEL SYNDROME [None]
  - LEUKOPENIA [None]
  - MUSCLE STRAIN [None]
  - MUSCULOSKELETAL PAIN [None]
  - NON-CARDIAC CHEST PAIN [None]
  - ORAL INFECTION [None]
  - ORAL PAIN [None]
  - OSTEOPENIA [None]
  - PAIN IN JAW [None]
  - PELVIC PAIN [None]
  - PLEURITIC PAIN [None]
  - PULMONARY GRANULOMA [None]
  - RECTAL HAEMORRHAGE [None]
  - ROAD TRAFFIC ACCIDENT [None]
  - SINUSITIS [None]
  - SKIN WRINKLING [None]
  - SUBCUTANEOUS ABSCESS [None]
  - SYNCOPE [None]
  - TEMPOROMANDIBULAR JOINT SYNDROME [None]
  - THERMAL BURN [None]
  - TOOTH DISORDER [None]
  - TOOTH EXTRACTION [None]
  - TOOTH INFECTION [None]
  - TOOTHACHE [None]
  - VESTIBULAR DISORDER [None]
